FAERS Safety Report 7593293-3 (Version None)
Quarter: 2011Q3

REPORT INFORMATION
  Report Type: 
  Country: None (occurrence: None)
  Receive Date: 20110706
  Receipt Date: 20110624
  Transmission Date: 20111222
  Serious: Yes (Hospitalization, Other)
  Sender: FDA-Public Use
  Company Number: US-BAYER-2011-004838

PATIENT
  Age: 24 Year
  Sex: Female
  Weight: 61.678 kg

DRUGS (3)
  1. NEXIUM [Concomitant]
     Indication: PEPTIC ULCER
     Dosage: UNK
     Dates: start: 20050101
  2. YAZ [Suspect]
     Indication: CONTRACEPTION
     Dosage: UNK
     Dates: start: 20070101, end: 20090101
  3. BENTYL [Concomitant]
     Indication: IRRITABLE BOWEL SYNDROME
     Dosage: UNK
     Dates: start: 20050101

REACTIONS (6)
  - GENERAL PHYSICAL HEALTH DETERIORATION [None]
  - INJURY [None]
  - CHOLECYSTECTOMY [None]
  - BILIARY DYSKINESIA [None]
  - PAIN [None]
  - EMOTIONAL DISTRESS [None]
